FAERS Safety Report 8312021-7 (Version None)
Quarter: 2012Q2

REPORT INFORMATION
  Report Type: 
  Country: None (occurrence: None)
  Receive Date: 20120425
  Receipt Date: 20120414
  Transmission Date: 20120825
  Serious: Yes (Hospitalization)
  Sender: FDA-Public Use
  Company Number: US-JNJFOC-20120407310

PATIENT
  Sex: Male
  Weight: 62.14 kg

DRUGS (24)
  1. TYLENOL (CAPLET) [Concomitant]
  2. CALCIUM CARBONATE [Concomitant]
  3. XOPENEX [Concomitant]
  4. MULTI-VITAMINS [Concomitant]
  5. NEURONTIN [Concomitant]
  6. LIPOIC ACID [Concomitant]
  7. ZOFRAN [Concomitant]
  8. NALTREXONE HYDROCHLORIDE [Concomitant]
  9. REMICADE [Suspect]
     Indication: INFLAMMATORY BOWEL DISEASE
     Route: 042
     Dates: start: 20050807, end: 20100507
  10. PULMICORT [Concomitant]
  11. ATENOLOL [Concomitant]
  12. BENADRYL [Concomitant]
  13. E VITAMIN [Concomitant]
  14. SELENIUM [Concomitant]
  15. RIBOFLAVIN [Concomitant]
  16. IMMUNE GLOBULIN NOS [Concomitant]
     Route: 042
     Dates: start: 20080808
  17. NEXIUM [Concomitant]
  18. MESALAMINE [Concomitant]
     Route: 048
  19. PROVIGIL [Concomitant]
  20. DULCOLAX [Concomitant]
  21. ANTIBIOTICS [Concomitant]
     Indication: INFLAMMATORY BOWEL DISEASE
  22. ASCORBIC ACID [Concomitant]
  23. COENZYME Q10 [Concomitant]
  24. MIRALAX [Concomitant]

REACTIONS (1)
  - INTESTINAL OBSTRUCTION [None]
